FAERS Safety Report 19882131 (Version 2)
Quarter: 2021Q4

REPORT INFORMATION
  Report Type: Spontaneous
  Country: US (occurrence: US)
  Receive Date: 20210924
  Receipt Date: 20211007
  Transmission Date: 20220303
  Serious: Yes (Other)
  Sender: FDA-Public Use
  Company Number: US-ORGANON-O2109USA001779

PATIENT
  Sex: Female

DRUGS (3)
  1. NEXPLANON [Suspect]
     Active Substance: ETONOGESTREL
     Indication: Contraception
     Dosage: 1 IMPLANT, ONCE
     Dates: start: 2016
  2. LEXAPRO [Concomitant]
     Active Substance: ESCITALOPRAM OXALATE
     Dosage: UNK
  3. TOPAMAX [Concomitant]
     Active Substance: TOPIRAMATE
     Dosage: UNK

REACTIONS (3)
  - Pregnancy with implant contraceptive [Not Recovered/Not Resolved]
  - Unintended pregnancy [Not Recovered/Not Resolved]
  - Incorrect product administration duration [Unknown]

NARRATIVE: CASE EVENT DATE: 20190101
